FAERS Safety Report 8056084-5 (Version None)
Quarter: 2012Q1

REPORT INFORMATION
  Report Type: 
  Country: None (occurrence: None)
  Receive Date: 20120119
  Receipt Date: 20120111
  Transmission Date: 20120608
  Serious: Yes (Other)
  Sender: FDA-Public Use
  Company Number: DE-JNJFOC-20111203958

PATIENT
  Sex: Male
  Weight: 81 kg

DRUGS (5)
  1. ALISKIREN [Concomitant]
  2. ASPIRIN [Concomitant]
  3. CANDESARTAN CILEXETIL [Concomitant]
  4. BISOPROLOL FUMARATE [Concomitant]
  5. XARELTO [Suspect]
     Indication: KNEE ARTHROPLASTY
     Route: 048
     Dates: start: 20111124, end: 20111130

REACTIONS (1)
  - DEEP VEIN THROMBOSIS [None]
